FAERS Safety Report 4468284-1 (Version None)
Quarter: 2004Q4

REPORT INFORMATION
  Report Type: 
  Country: None (occurrence: None)
  Receive Date: 20041007
  Receipt Date: 20040910
  Transmission Date: 20050328
  Serious: Yes (Hospitalization)
  Sender: FDA-Public Use
  Company Number: DE-ROCHE-380039

PATIENT
  Age: 65 Year
  Sex: Male

DRUGS (18)
  1. DACLIZUMAB [Suspect]
     Route: 042
     Dates: start: 20040609, end: 20040806
  2. MYCOPHENOLATE MOFETIL [Suspect]
     Route: 048
     Dates: start: 20040609
  3. MYCOPHENOLATE MOFETIL [Suspect]
     Route: 048
     Dates: start: 20040610
  4. MYCOPHENOLATE MOFETIL [Suspect]
     Route: 048
     Dates: start: 20040911, end: 20040912
  5. SIROLIMUS [Suspect]
     Route: 048
     Dates: start: 20040609
  6. SIROLIMUS [Suspect]
     Route: 048
     Dates: start: 20040611
  7. SIROLIMUS [Suspect]
     Route: 048
     Dates: start: 20040619
  8. SIROLIMUS [Suspect]
     Route: 048
     Dates: start: 20040705
  9. SIROLIMUS [Suspect]
     Route: 048
     Dates: start: 20040709
  10. SIROLIMUS [Suspect]
     Route: 048
     Dates: start: 20040719
  11. SIROLIMUS [Suspect]
     Route: 048
  12. SOLU-DECORTIN H [Suspect]
     Route: 048
     Dates: start: 20040609
  13. SOLU-DECORTIN H [Suspect]
     Route: 048
     Dates: start: 20040610, end: 20040611
  14. PREDNISOLONE [Suspect]
     Route: 048
     Dates: start: 20040611
  15. PREDNISOLONE [Suspect]
     Route: 048
     Dates: start: 20040624
  16. PREDNISOLONE [Suspect]
     Route: 048
     Dates: start: 20040718
  17. PREDNISOLONE [Suspect]
     Route: 048
     Dates: start: 20040724
  18. VALGANCICLOVIR [Concomitant]
     Route: 048
     Dates: start: 20040612, end: 20040910

REACTIONS (3)
  - BLOOD CREATININE INCREASED [None]
  - INFECTION [None]
  - LEUKOPENIA [None]
